FAERS Safety Report 8002160-2 (Version None)
Quarter: 2011Q4

REPORT INFORMATION
  Report Type: 
  Country: None (occurrence: None)
  Receive Date: 20111222
  Receipt Date: 20111216
  Transmission Date: 20120403
  Serious: Yes (Hospitalization)
  Sender: FDA-Public Use
  Company Number: GB-PFIZER INC-2011307567

PATIENT
  Age: 54 Year
  Sex: Female

DRUGS (10)
  1. GEMTUZUMAB OZOGAMICIN [Suspect]
     Indication: ACUTE MYELOID LEUKAEMIA
     Dosage: UNK
     Dates: start: 20110630, end: 20111021
  2. GEMTUZUMAB OZOGAMICIN [Suspect]
     Indication: MYELODYSPLASTIC SYNDROME
  3. CYTARABINE [Suspect]
     Indication: MYELODYSPLASTIC SYNDROME
  4. ETOPOSIDE [Suspect]
     Indication: MYELODYSPLASTIC SYNDROME
  5. CYTARABINE [Suspect]
     Indication: ACUTE MYELOID LEUKAEMIA
     Dosage: UNK
     Dates: start: 20110630, end: 20111021
  6. CLOFARABINE [Suspect]
     Indication: MYELODYSPLASTIC SYNDROME
  7. DAUNORUBICIN HYDROCHLORIDE [Suspect]
     Indication: ACUTE MYELOID LEUKAEMIA
     Dosage: UNK
     Dates: start: 20110630, end: 20111021
  8. DAUNORUBICIN HYDROCHLORIDE [Suspect]
     Indication: MYELODYSPLASTIC SYNDROME
  9. CLOFARABINE [Suspect]
     Indication: ACUTE MYELOID LEUKAEMIA
     Dosage: UNK
     Dates: start: 20110630, end: 20111021
  10. ETOPOSIDE [Suspect]
     Indication: ACUTE MYELOID LEUKAEMIA
     Dosage: UNK
     Dates: start: 20110630, end: 20111021

REACTIONS (1)
  - NEUTROPENIC SEPSIS [None]
